FAERS Safety Report 10559993 (Version 1)
Quarter: 2014Q4

REPORT INFORMATION
  Report Type: Spontaneous
  Country: US (occurrence: None)
  Receive Date: 20141031
  Receipt Date: 20141031
  Transmission Date: 20150529
  Serious: Yes (Disabling)
  Sender: FDA-Public Use
  Company Number: None

PATIENT
  Age: 90 Year
  Sex: Female
  Weight: 65.77 kg

DRUGS (1)
  1. AMIODARONE 200MG [Suspect]
     Active Substance: AMIODARONE
     Indication: HEART RATE IRREGULAR
     Dosage: 200MG, ONCE DAILY, TAKEN BY MOUTH
     Route: 048
     Dates: start: 20140627, end: 20140801

REACTIONS (2)
  - Gait disturbance [None]
  - Asthenia [None]

NARRATIVE: CASE EVENT DATE: 20140627
